FAERS Safety Report 5847717-X (Version None)
Quarter: 2008Q3

REPORT INFORMATION
  Report Type: 
  Country: None (occurrence: None)
  Receive Date: 20080815
  Receipt Date: 20080815
  Transmission Date: 20090109
  Serious: No
  Sender: FDA-Public Use
  Company Number: None

PATIENT
  Age: 69 Year
  Sex: Female
  Weight: 53.5244 kg

DRUGS (1)
  1. ASPERCREME 10% CHATTEM, INC. [Suspect]
     Indication: CARPAL TUNNEL SYNDROME
     Dosage: GENEROUS 1 TIME A DAY W/325MG ASPIRIN
     Dates: start: 20080504, end: 20080507

REACTIONS (3)
  - BLISTER [None]
  - PRURITUS [None]
  - RASH [None]
